FAERS Safety Report 16144585 (Version 1)
Quarter: 2019Q2

REPORT INFORMATION
  Report Type: Spontaneous
  Country: US (occurrence: US)
  Receive Date: 20190401
  Receipt Date: 20190401
  Transmission Date: 20190711
  Serious: No
  Sender: FDA-Public Use
  Company Number: None

PATIENT
  Age: 55 Year
  Sex: Male
  Weight: 97 kg

DRUGS (2)
  1. NIACIN. [Concomitant]
     Active Substance: NIACIN
     Dates: start: 20190214
  2. NIACIN. [Suspect]
     Active Substance: NIACIN
     Indication: DYSLIPIDAEMIA
     Dates: start: 20190102

REACTIONS (1)
  - Flushing [None]

NARRATIVE: CASE EVENT DATE: 20190214
